FAERS Safety Report 25319308 (Version 1)
Quarter: 2025Q2

REPORT INFORMATION
  Report Type: Report from Study
  Country: US (occurrence: US)
  Receive Date: 20250515
  Receipt Date: 20250515
  Transmission Date: 20250717
  Serious: Yes (Hospitalization)
  Sender: EISAI
  Company Number: US-Eisai-EC-2025-188609

PATIENT
  Age: 74 Year
  Sex: Female

DRUGS (2)
  1. LENVIMA [Suspect]
     Active Substance: LENVATINIB
     Indication: Endometrial cancer
     Dates: start: 20250427, end: 20250510
  2. KEYTRUDA [Concomitant]
     Active Substance: PEMBROLIZUMAB

REACTIONS (10)
  - Platelet count decreased [Unknown]
  - Blood pressure increased [Unknown]
  - Flatulence [Unknown]
  - Vaginal discharge [Unknown]
  - Brain fog [Unknown]
  - Asthenia [Recovering/Resolving]
  - Decreased appetite [Recovered/Resolved]
  - Urinary tract infection [Recovered/Resolved]
  - Faeces soft [Unknown]
  - Constipation [Unknown]

NARRATIVE: CASE EVENT DATE: 20250101
